FAERS Safety Report 25817962 (Version 2)
Quarter: 2025Q3

REPORT INFORMATION
  Report Type: Spontaneous
  Country: GB (occurrence: GB)
  Receive Date: 20250918
  Receipt Date: 20250926
  Transmission Date: 20251021
  Serious: Yes (Hospitalization)
  Sender: BIOGEN
  Company Number: GB-BIOGEN-2025BI01324139

PATIENT
  Sex: Female

DRUGS (1)
  1. TYSABRI [Suspect]
     Active Substance: NATALIZUMAB
     Indication: Product used for unknown indication
     Route: 050
     Dates: start: 2011

REACTIONS (3)
  - Deep vein thrombosis [Unknown]
  - Pulmonary embolism [Unknown]
  - May-Thurner syndrome [Unknown]
